FAERS Safety Report 6935300-4 (Version None)
Quarter: 2010Q3

REPORT INFORMATION
  Report Type: 
  Country: None (occurrence: None)
  Receive Date: 20100822
  Receipt Date: 20100722
  Transmission Date: 20110219
  Serious: Yes (Hospitalization, Other)
  Sender: FDA-Public Use
  Company Number: PHEH2007US05548

PATIENT
  Sex: Male
  Weight: 85.261 kg

DRUGS (55)
  1. AREDIA [Suspect]
     Dosage: MONTHLY
  2. ZOMETA [Suspect]
     Dosage: 4MG MONTHLY
     Route: 042
  3. PRILOSEC [Concomitant]
     Dosage: 20 MG
  4. PREVACID [Concomitant]
     Dosage: 30 MG
  5. METOCLOPRAMIDE [Concomitant]
     Dosage: 10 MG
  6. NITROSTAT [Concomitant]
     Dosage: 0.4 MG
  7. MINITRAN [Concomitant]
     Dosage: 0.2 MG/HR
  8. LEVAQUIN [Concomitant]
     Dosage: 500 MG
  9. PROFEN II DM [Concomitant]
  10. HYDROCODONE BITARTRATE AND ACETAMINOPHEN [Concomitant]
     Dosage: 7.5 MG/500 MG
  11. FLOVENT [Concomitant]
     Dosage: 44 MCG
  12. NEXIUM [Concomitant]
     Dosage: 40 MG
  13. OXYCODONE HCL AND ACETAMINOPHEN [Concomitant]
     Dosage: 5/325 MG
  14. METOPROLOL TARTRATE [Concomitant]
     Dosage: 50 MG
  15. ALPRAZOLAM [Concomitant]
     Dosage: 0.25 MG
  16. NYSTATIN [Concomitant]
     Dosage: 10,000 U
  17. MORPHINE SULFATE [Concomitant]
     Dosage: 20 MG/ML
  18. AMOXICILLIN [Concomitant]
     Dosage: 500 MG
  19. BIAXIN [Concomitant]
     Dosage: 250 MG
  20. ZITROMAX [Concomitant]
  21. OXYCODONE [Concomitant]
     Dosage: 5 MG
  22. DURAGESIC-100 [Concomitant]
     Dosage: 25 MCG/HR
  23. AMITRIPTYLINE HCL [Concomitant]
     Dosage: 25 MG
  24. SYNTHROID [Concomitant]
     Dosage: 25 MCG
  25. DEXAMETHASONE [Concomitant]
     Dosage: 4 MG
  26. EFFEXOR XR [Concomitant]
     Dosage: 37.5 MG
  27. CIPRO [Concomitant]
     Dosage: 250 MG
  28. CARISOPRODOL [Concomitant]
     Dosage: 350 MG
  29. PENICILLIN VK [Concomitant]
     Dosage: 500 MG
  30. PREDNISONE [Concomitant]
     Dosage: 20 MG
  31. PROCHLORPERAZINE [Concomitant]
     Dosage: 10 MG
  32. PAXIL [Concomitant]
     Dosage: 12.5 MG
  33. FAMVIR                                  /NET/ [Concomitant]
     Dosage: 500 MG
  34. VALTREX [Concomitant]
     Dosage: 500 MG
  35. PROVIGIL [Concomitant]
     Dosage: 200 MG
  36. CYMBALTA [Concomitant]
     Dosage: 60 MG
  37. LACTULOSE [Concomitant]
     Dosage: 10 GM/15 ML
  38. GLYBURIDE [Concomitant]
     Dosage: 1.25 MG
  39. FLUCONAZOLE [Concomitant]
     Dosage: 100 MG
  40. COMPRO [Concomitant]
     Dosage: 25 MG
  41. AVELOX [Concomitant]
     Dosage: 300 MG
  42. CHLORHEXIDINE GLUCONATE [Concomitant]
     Dosage: 0.12%
  43. SERTRALINE HYDROCHLORIDE [Concomitant]
     Dosage: 50 MG
  44. VICODIN [Concomitant]
  45. PERCOCET [Concomitant]
  46. THALIDOMIDE [Concomitant]
  47. PHENERGAN ^AVENTIS PHARMA^ [Concomitant]
  48. NEURONTIN [Concomitant]
  49. OXYFAST [Concomitant]
  50. PROCRIT                            /00909301/ [Concomitant]
     Dosage: UNK
     Dates: start: 20040101
  51. VELCADE [Concomitant]
  52. DEXAMETHASONE W/DOXORUBICIN/VINCRISTINE [Concomitant]
     Dosage: UNK
     Dates: start: 20021001
  53. CLINDAMYCIN [Concomitant]
     Dosage: 300 MG, TID
  54. CALCIUM [Concomitant]
     Dosage: 600 MG, BID
  55. VITAMIN D [Concomitant]
     Dosage: 1000 MG, QD

REACTIONS (55)
  - AFFECTIVE DISORDER [None]
  - ANAEMIA [None]
  - ANXIETY [None]
  - ASBESTOSIS [None]
  - ASPIRATION PLEURAL CAVITY [None]
  - BACK PAIN [None]
  - BIOPSY BONE MARROW [None]
  - BLINDNESS CORTICAL [None]
  - BLINDNESS TRANSIENT [None]
  - BONE MARROW TRANSPLANT [None]
  - BONE PAIN [None]
  - CENTRAL VENOUS CATHETERISATION [None]
  - CHEST PAIN [None]
  - COUGH [None]
  - DECREASED APPETITE [None]
  - DRUG DEPENDENCE [None]
  - DYSPHAGIA [None]
  - EYE PAIN [None]
  - FATIGUE [None]
  - FLANK PAIN [None]
  - GLAUCOMA [None]
  - GYNAECOMASTIA [None]
  - HEADACHE [None]
  - HERPES ZOSTER [None]
  - HYPERGLYCAEMIA [None]
  - HYPOAESTHESIA [None]
  - HYPOKALAEMIA [None]
  - HYPOPHOSPHATAEMIA [None]
  - INJURY [None]
  - LOSS OF CONSCIOUSNESS [None]
  - LUMBAR SPINAL STENOSIS [None]
  - MALAISE [None]
  - MOUTH ULCERATION [None]
  - MUCOSAL INFLAMMATION [None]
  - MULTIPLE MYELOMA [None]
  - NAUSEA [None]
  - NECK MASS [None]
  - NECK PAIN [None]
  - OEDEMA PERIPHERAL [None]
  - OESOPHAGEAL ULCER [None]
  - OSTEOARTHRITIS [None]
  - OSTEONECROSIS OF JAW [None]
  - PAIN [None]
  - PAIN IN JAW [None]
  - PANCYTOPENIA [None]
  - PLEURAL EFFUSION [None]
  - PNEUMONIA [None]
  - PYREXIA [None]
  - ROAD TRAFFIC ACCIDENT [None]
  - SINUSITIS [None]
  - SLEEP APNOEA SYNDROME [None]
  - SPINAL DISORDER [None]
  - TYPE 2 DIABETES MELLITUS [None]
  - VITAMIN B12 DEFICIENCY [None]
  - VOMITING [None]
